FAERS Safety Report 9850247 (Version 1)
Quarter: 2014Q1

REPORT INFORMATION
  Report Type: Spontaneous
  Country: US (occurrence: None)
  Receive Date: 20140127
  Receipt Date: 20140127
  Transmission Date: 20141002
  Serious: Yes (Death, Hospitalization, Disabling, Other)
  Sender: FDA-Public Use
  Company Number: None

PATIENT
  Age: 52 Year
  Sex: Male

DRUGS (5)
  1. CARBOPLATIN [Suspect]
     Indication: LUNG CANCER METASTATIC
  2. CARBOPLATIN [Suspect]
     Indication: METASTASES TO CENTRAL NERVOUS SYSTEM
  3. ALIMTA [Suspect]
     Indication: LUNG CANCER METASTATIC
  4. ALIMTA [Suspect]
     Indication: METASTASES TO CENTRAL NERVOUS SYSTEM
  5. AVASTIN [Suspect]

REACTIONS (8)
  - Stomatitis [None]
  - Ulcer haemorrhage [None]
  - Nausea [None]
  - Vomiting [None]
  - Rash [None]
  - Epistaxis [None]
  - Tachycardia [None]
  - Multi-organ failure [None]
